FAERS Safety Report 13978591 (Version 1)
Quarter: 2017Q3

REPORT INFORMATION
  Report Type: Spontaneous
  Country: DZ (occurrence: DZ)
  Receive Date: 20170915
  Receipt Date: 20170915
  Transmission Date: 20171128
  Serious: Yes (Other)
  Sender: FDA-Public Use
  Company Number: DZ-WEST-WARD PHARMACEUTICALS CORP.-DZ-H14001-17-03545

PATIENT
  Age: 61 Year
  Sex: Female

DRUGS (8)
  1. SOLU-MEDROL [Concomitant]
     Active Substance: METHYLPREDNISOLONE SODIUM SUCCINATE
     Indication: RHEUMATOID ARTHRITIS
     Route: 065
  2. FLIXOTIDE [Concomitant]
     Active Substance: FLUTICASONE PROPIONATE
     Indication: ASTHMA
     Route: 065
  3. ALENDRONATE [Concomitant]
     Active Substance: ALENDRONATE SODIUM
     Indication: OSTEOPOROSIS
     Route: 065
  4. VITAMIN D [Concomitant]
     Active Substance: CHOLECALCIFEROL
     Indication: PRODUCT USED FOR UNKNOWN INDICATION
     Route: 065
  5. GABATREX [Suspect]
     Active Substance: GABAPENTIN
     Indication: DIABETIC NEUROPATHY
     Route: 048
     Dates: start: 20170904, end: 20170904
  6. TAHOR [Concomitant]
     Active Substance: ATORVASTATIN CALCIUM
     Indication: HYPERCHOLESTEROLAEMIA
     Route: 065
  7. INSULIN [Concomitant]
     Active Substance: INSULIN NOS
     Indication: PRODUCT USED FOR UNKNOWN INDICATION
     Route: 065
  8. METHOTREXATE. [Concomitant]
     Active Substance: METHOTREXATE
     Indication: RHEUMATOID ARTHRITIS
     Route: 065

REACTIONS (2)
  - Myoclonic epilepsy [Recovered/Resolved]
  - Loss of consciousness [Recovered/Resolved]

NARRATIVE: CASE EVENT DATE: 20170904
